FAERS Safety Report 7054415-6 (Version None)
Quarter: 2010Q4

REPORT INFORMATION
  Report Type: 
  Country: None (occurrence: None)
  Receive Date: 20101020
  Receipt Date: 20101013
  Transmission Date: 20110411
  Serious: Yes (Hospitalization)
  Sender: FDA-Public Use
  Company Number: US-US-EMD SERONO, INC.-7022069

PATIENT
  Sex: Male

DRUGS (6)
  1. REBIF [Suspect]
     Indication: PRODUCT USED FOR UNKNOWN INDICATION
     Route: 058
     Dates: start: 20090914
  2. METHADONE HYDROCHLORIDE [Concomitant]
  3. SEROQUEL [Concomitant]
  4. CLONOPIN [Concomitant]
  5. GABAPENTIN [Concomitant]
  6. EFFEXOR [Concomitant]

REACTIONS (1)
  - MAJOR DEPRESSION [None]
